FAERS Safety Report 4553162-X (Version None)
Quarter: 2005Q1

REPORT INFORMATION
  Report Type: 
  Country: None (occurrence: None)
  Receive Date: 20050114
  Receipt Date: 20050103
  Transmission Date: 20050727
  Serious: Yes (Other)
  Sender: FDA-Public Use
  Company Number: PT-GLAXOSMITHKLINE-B0364204A

PATIENT
  Age: 50 Year
  Sex: Female

DRUGS (4)
  1. HYCAMTIN [Suspect]
     Indication: OVARIAN CANCER
     Dosage: 1.25MGM2 PER DAY
     Route: 065
     Dates: start: 20041214, end: 20041216
  2. PACLITAXEL [Concomitant]
  3. VP16 [Concomitant]
  4. LIPOSOMAL STEALTH DOXORUBICIN HYDROCHLORIDE [Concomitant]

REACTIONS (3)
  - BLINDNESS [None]
  - CARBOHYDRATE ANTIGEN 125 INCREASED [None]
  - OPTIC NEUROPATHY [None]
